FAERS Safety Report 4350689-0 (Version None)
Quarter: 2004Q2

REPORT INFORMATION
  Report Type: 
  Country: None (occurrence: None)
  Receive Date: 20040429
  Receipt Date: 20040429
  Transmission Date: 20050107
  Serious: Yes (Life-Threatening, Hospitalization)
  Sender: FDA-Public Use
  Company Number: None

PATIENT
  Age: 66 Year
  Sex: Male
  Weight: 70.9 kg

DRUGS (6)
  1. RITUXIMAB GENETECH [Suspect]
     Indication: B-CELL LYMPHOMA
     Dosage: INTRAVENOUS
     Route: 042
     Dates: start: 20040210, end: 20040323
  2. DOXORUBICIN HCL [Concomitant]
  3. DEXAMETHASONE [Concomitant]
  4. VINCRISTINE [Concomitant]
  5. CYCLOPHOSPHAMIDE [Concomitant]
  6. RITUXIMAB [Concomitant]

REACTIONS (5)
  - COUGH [None]
  - CREPITATIONS [None]
  - DYSPNOEA [None]
  - HYPOXIA [None]
  - PYREXIA [None]
